FAERS Safety Report 5403504-8 (Version None)
Quarter: 2007Q3

REPORT INFORMATION
  Report Type: 
  Country: None (occurrence: None)
  Receive Date: 20070730
  Receipt Date: 20070712
  Transmission Date: 20080115
  Serious: Yes (Other)
  Sender: FDA-Public Use
  Company Number: 2007VX001858

PATIENT
  Age: 60 Year
  Sex: Male

DRUGS (1)
  1. EFUDEX [Suspect]

REACTIONS (2)
  - EXFOLIATIVE RASH [None]
  - PRURITUS [None]
